FAERS Safety Report 14415082 (Version 1)
Quarter: 2018Q1

REPORT INFORMATION
  Report Type: Spontaneous
  Country: US (occurrence: US)
  Receive Date: 20180118
  Receipt Date: 20180118
  Transmission Date: 20180509
  Serious: Yes (Hospitalization)
  Sender: FDA-Public Use
  Company Number: None

PATIENT
  Age: 73 Year
  Sex: Male

DRUGS (1)
  1. RIVAROXABAN [Suspect]
     Active Substance: RIVAROXABAN
     Indication: PULMONARY EMBOLISM
     Route: 048
     Dates: start: 20171101, end: 20171108

REACTIONS (4)
  - Anaemia [None]
  - Anticoagulation drug level below therapeutic [None]
  - Gastric haemorrhage [None]
  - Gastritis [None]

NARRATIVE: CASE EVENT DATE: 20171106
